FAERS Safety Report 4946145-9 (Version None)
Quarter: 2006Q1

REPORT INFORMATION
  Report Type: 
  Country: None (occurrence: None)
  Receive Date: 20060118
  Receipt Date: 20050315
  Transmission Date: 20060701
  Serious: Yes (Other)
  Sender: FDA-Public Use
  Company Number: BDI-007027

PATIENT
  Age: 79 Year
  Sex: Female
  Weight: 91 kg

DRUGS (7)
  1. PROHANCE [Suspect]
     Indication: BLOOD PRESSURE INCREASED
     Dosage: 40 ML ONCE IV
     Route: 042
     Dates: start: 20050311, end: 20050311
  2. PROHANCE [Suspect]
     Indication: NUCLEAR MAGNETIC RESONANCE IMAGING
     Dosage: 40 ML ONCE IV
     Route: 042
     Dates: start: 20050311, end: 20050311
  3. COUMADIN [Concomitant]
  4. ECOTRIN [Concomitant]
  5. AMILORID/HCTZ HELVEPHARM [Concomitant]
  6. ANTIHYPERCHOLESTEROLEMIC [Concomitant]
  7. METHYLPHENIDATE HCL [Concomitant]

REACTIONS (4)
  - DIZZINESS [None]
  - DYSGEUSIA [None]
  - SWELLING FACE [None]
  - SWOLLEN TONGUE [None]
